FAERS Safety Report 15961451 (Version 3)
Quarter: 2019Q2

REPORT INFORMATION
  Report Type: Report from Study
  Country: ES (occurrence: ES)
  Receive Date: 20190214
  Receipt Date: 20190611
  Transmission Date: 20190711
  Serious: Yes (Life-Threatening, Hospitalization, Other)
  Sender: FDA-Public Use
  Company Number: ES-NOVOPROD-646519

PATIENT
  Age: 56 Year
  Sex: Female
  Weight: 117 kg

DRUGS (8)
  1. SEMAGLUTIDE B 1.0 MG/ML PDS290 [Suspect]
     Active Substance: SEMAGLUTIDE
     Dosage: 0.25 MG, QW
     Route: 058
     Dates: start: 20190322
  2. SERTRALINA                         /01011401/ [Concomitant]
     Active Substance: SERTRALINE HYDROCHLORIDE
     Indication: ANXIETY
     Dosage: 100.0,MG,
     Dates: start: 2006
  3. SEMAGLUTIDE B 1.0 MG/ML PDS290 [Suspect]
     Active Substance: SEMAGLUTIDE
     Indication: OBESITY
     Dosage: 0.25,MG,ONCE PER WEEK
     Route: 058
     Dates: start: 20190120, end: 20190208
  4. BISOPROLOL [Concomitant]
     Active Substance: BISOPROLOL
     Indication: HYPERTENSION
     Dosage: 5.0,MG,
     Dates: start: 200612
  5. FLECAINIDA [Concomitant]
     Indication: ARRHYTHMIA
     Dosage: 100.0,MG,
     Dates: start: 2006, end: 20190411
  6. COLECALCIFEROL [Concomitant]
     Active Substance: CHOLECALCIFEROL
     Indication: VITAMIN D DEFICIENCY
     Dosage: 1785.0,INTERNATIONAL UNITS,
     Dates: start: 2018
  7. ACETYLSALICYLIC ACID [Concomitant]
     Active Substance: ASPIRIN
     Indication: ARRHYTHMIA
     Dosage: 300.0,MG,
     Dates: start: 2006
  8. OMEPRAZOL                          /00661201/ [Concomitant]
     Active Substance: OMEPRAZOLE
     Indication: PROPHYLAXIS AGAINST GASTROINTESTINAL ULCER
     Dosage: 20.0,MG,
     Dates: start: 2006

REACTIONS (1)
  - Cholecystitis acute [Recovered/Resolved]

NARRATIVE: CASE EVENT DATE: 20190204
